FAERS Safety Report 19008652 (Version 1)
Quarter: 2021Q1

REPORT INFORMATION
  Report Type: Spontaneous
  Country: NL (occurrence: NL)
  Receive Date: 20210315
  Receipt Date: 20210315
  Transmission Date: 20210420
  Serious: Yes (Other)
  Sender: FDA-Public Use
  Company Number: PHHY2017NL096214

PATIENT
  Sex: Female

DRUGS (4)
  1. METHYLPREDNISOLONE. [Suspect]
     Active Substance: METHYLPREDNISOLONE
     Indication: NEURALGIA
     Dosage: 75 MG, Q24H (QD)
     Route: 065
  2. TRAMADOL HYDROCHLORIDE. [Suspect]
     Active Substance: TRAMADOL HYDROCHLORIDE
     Indication: NEURALGIA
     Dosage: 75 MG, Q24H (QD)
     Route: 065
  3. LYRICA [Suspect]
     Active Substance: PREGABALIN
     Indication: NEURALGIA
     Dosage: 75 MG, Q24H (QD)
     Route: 065
  4. PARACETAMOL [Suspect]
     Active Substance: ACETAMINOPHEN
     Indication: NEURALGIA
     Dosage: 75 MG, Q24H (QD)
     Route: 065

REACTIONS (8)
  - Vomiting [Unknown]
  - Colour blindness acquired [Recovered/Resolved]
  - Pruritus [Unknown]
  - Visual impairment [Recovered/Resolved]
  - Rash [Unknown]
  - Burning sensation [Recovered/Resolved]
  - Eye swelling [Recovered/Resolved]
  - Photopsia [Recovered/Resolved]
